FAERS Safety Report 7720883-7 (Version None)
Quarter: 2011Q3

REPORT INFORMATION
  Report Type: 
  Country: None (occurrence: None)
  Receive Date: 20110830
  Receipt Date: 20110830
  Transmission Date: 20111222
  Serious: Yes (Life-Threatening)
  Sender: FDA-Public Use
  Company Number: None

PATIENT
  Age: 58 Year
  Sex: Male
  Weight: 94.3482 kg

DRUGS (1)
  1. VIIBRYD [Suspect]
     Indication: BIPOLAR DISORDER
     Dosage: 40 MG 1X DAY ORAL
     Route: 048
     Dates: start: 20110712, end: 20110729

REACTIONS (3)
  - OBSESSIVE THOUGHTS [None]
  - INTENTIONAL SELF-INJURY [None]
  - SUICIDAL IDEATION [None]
